FAERS Safety Report 4320113-2 (Version None)
Quarter: 2004Q1

REPORT INFORMATION
  Report Type: 
  Country: None (occurrence: None)
  Receive Date: 20040317
  Receipt Date: 20040303
  Transmission Date: 20041129
  Serious: Yes (Other)
  Sender: FDA-Public Use
  Company Number: NSADSS2002035864

PATIENT
  Age: 8 Year
  Sex: Male

DRUGS (13)
  1. REMICADE [Suspect]
     Indication: CROHN'S DISEASE
     Dosage: SEE IMAGE INTRAVENOUS DRIP
     Route: 041
     Dates: start: 20021002, end: 20021002
  2. REMICADE [Suspect]
     Indication: CROHN'S DISEASE
     Dosage: SEE IMAGE INTRAVENOUS DRIP
     Route: 041
     Dates: start: 19991111
  3. REMICADE [Suspect]
     Indication: CROHN'S DISEASE
     Dosage: SEE IMAGE INTRAVENOUS DRIP
     Route: 041
     Dates: start: 20020807
  4. MERCAPTOPURINE [Concomitant]
  5. STEROIDS (CORTICOSTEROID NOS) [Concomitant]
  6. PENTASA [Concomitant]
  7. SOLU-MEDROL [Concomitant]
  8. BENADRYL [Concomitant]
  9. TYLENOL [Concomitant]
  10. FOLIC ACID [Concomitant]
  11. IRON (IRON) [Concomitant]
  12. PEDIPRED (CORTICOSTEROID NOS) [Concomitant]
  13. PRILOSEC [Concomitant]

REACTIONS (14)
  - ABDOMINAL PAIN UPPER [None]
  - ANAPHYLACTIC REACTION [None]
  - ARTHRITIS [None]
  - CONVULSION [None]
  - DIARRHOEA HAEMORRHAGIC [None]
  - MENINGOENCEPHALITIS BACTERIAL [None]
  - MENTAL STATUS CHANGES [None]
  - MONOPLEGIA [None]
  - MUCOSAL HAEMORRHAGE [None]
  - MYCOPLASMA INFECTION [None]
  - RED BLOOD CELL SEDIMENTATION RATE INCREASED [None]
  - RESPIRATORY ARREST [None]
  - SKIN DISCOLOURATION [None]
  - VOMITING [None]
